FAERS Safety Report 21895500 (Version 1)
Quarter: 2023Q1

REPORT INFORMATION
  Report Type: Spontaneous
  Country: JP (occurrence: JP)
  Receive Date: 20230123
  Receipt Date: 20230123
  Transmission Date: 20230417
  Serious: Yes (Other)
  Sender: FDA-Public Use
  Company Number: JP-NBI-S202100036

PATIENT
  Age: 76 Year
  Sex: Female

DRUGS (3)
  1. GILOTRIF [Suspect]
     Active Substance: AFATINIB
     Indication: Non-small cell lung cancer
     Route: 065
  2. GILOTRIF [Suspect]
     Active Substance: AFATINIB
     Indication: EGFR gene mutation
  3. TAGRISSO [Suspect]
     Active Substance: OSIMERTINIB
     Indication: Non-small cell lung cancer
     Route: 048

REACTIONS (6)
  - Diarrhoea [Unknown]
  - Malignant neoplasm progression [Unknown]
  - Vomiting [Unknown]
  - Blood creatinine increased [Unknown]
  - Pyrexia [Unknown]
  - Gene mutation [Unknown]
